FAERS Safety Report 14586425 (Version 1)
Quarter: 2018Q1

REPORT INFORMATION
  Report Type: Spontaneous
  Country: PL (occurrence: PL)
  Receive Date: 20180301
  Receipt Date: 20180301
  Transmission Date: 20180509
  Serious: Yes (Hospitalization, Other)
  Sender: FDA-Public Use
  Company Number: PL-PFIZER INC-2018077915

PATIENT
  Age: 55 Year
  Sex: Female

DRUGS (1)
  1. DOCETAXEL. [Suspect]
     Active Substance: DOCETAXEL
     Indication: BREAST CANCER
     Dosage: UNK, 1, CYCLIC
     Route: 065

REACTIONS (4)
  - Osteonecrosis [Unknown]
  - Stomatitis necrotising [Unknown]
  - Noninfective gingivitis [Unknown]
  - Pain [Unknown]
